FAERS Safety Report 7805051-2 (Version None)
Quarter: 2011Q4

REPORT INFORMATION
  Report Type: 
  Country: None (occurrence: None)
  Receive Date: 20111010
  Receipt Date: 20111004
  Transmission Date: 20120403
  Serious: Yes (Hospitalization)
  Sender: FDA-Public Use
  Company Number: DE-GLAXOSMITHKLINE-B0739059B

PATIENT
  Sex: Female
  Weight: 84 kg

DRUGS (3)
  1. DOXORUBICIN HCL [Suspect]
     Indication: BREAST CANCER
     Dosage: 112.2MG EVERY 3 WEEKS
     Route: 042
     Dates: start: 20110719
  2. PACLITAXEL [Suspect]
     Indication: BREAST CANCER
     Dosage: 327.25MG EVERY 3 WEEKS
     Route: 042
     Dates: start: 20110719
  3. LAPATINIB [Suspect]
     Indication: BREAST CANCER
     Dosage: 1250MG PER DAY
     Route: 048
     Dates: start: 20110719

REACTIONS (1)
  - PYREXIA [None]
